FAERS Safety Report 4620525-3 (Version None)
Quarter: 2005Q1

REPORT INFORMATION
  Report Type: 
  Country: None (occurrence: None)
  Receive Date: 20050328
  Receipt Date: 20050311
  Transmission Date: 20050727
  Serious: Yes (Hospitalization)
  Sender: FDA-Public Use
  Company Number: US-GLAXOSMITHKLINE-A0549668A

PATIENT
  Age: 63 Year
  Sex: Female
  Weight: 81.8 kg

DRUGS (2)
  1. TOPOTECAN [Suspect]
     Indication: OVARIAN CANCER
     Dosage: 4MGM2 WEEKLY
     Route: 042
     Dates: start: 20050207
  2. COUMADIN [Suspect]
     Indication: DEEP VEIN THROMBOSIS
     Dosage: 5MG PER DAY
     Route: 065
     Dates: start: 20050101, end: 20050211

REACTIONS (1)
  - VAGINAL HAEMORRHAGE [None]
